FAERS Safety Report 24783616 (Version 4)
Quarter: 2025Q3

REPORT INFORMATION
  Report Type: Spontaneous
  Country: US (occurrence: US)
  Receive Date: 20241227
  Receipt Date: 20250905
  Transmission Date: 20251020
  Serious: Yes (Other)
  Sender: SANOFI AVENTIS
  Company Number: US-SA-2024SA382005

PATIENT
  Age: 66 Year
  Sex: Male

DRUGS (3)
  1. DUPIXENT [Suspect]
     Active Substance: DUPILUMAB
     Indication: Dermatitis atopic
     Route: 058
     Dates: start: 202412, end: 202412
  2. DUPIXENT [Suspect]
     Active Substance: DUPILUMAB
     Dosage: 300 MG, QOW
     Route: 058
     Dates: start: 2024
  3. ROSUVASTATIN [Suspect]
     Active Substance: ROSUVASTATIN

REACTIONS (2)
  - Poisoning [Unknown]
  - Dermatitis atopic [Unknown]

NARRATIVE: CASE EVENT DATE: 20240101
